FAERS Safety Report 4441370-8 (Version None)
Quarter: 2004Q3

REPORT INFORMATION
  Report Type: 
  Country: None (occurrence: None)
  Receive Date: 20040728
  Receipt Date: 20040429
  Transmission Date: 20050211
  Serious: No
  Sender: FDA-Public Use
  Company Number: USA040466364

PATIENT
  Age: 13 Year
  Sex: Female
  Weight: 50 kg

DRUGS (3)
  1. STRATTERA [Suspect]
  2. PROZAC [Suspect]
  3. ABILIFY [Concomitant]

REACTIONS (1)
  - INTENTIONAL OVERDOSE [None]
